FAERS Safety Report 4339541-4 (Version None)
Quarter: 2004Q2

REPORT INFORMATION
  Report Type: 
  Country: None (occurrence: None)
  Receive Date: 20040412
  Receipt Date: 20040331
  Transmission Date: 20050107
  Serious: Yes (Hospitalization)
  Sender: FDA-Public Use
  Company Number: HQWYE309301APR04

PATIENT
  Age: 67 Year
  Sex: Female
  Weight: 53.2 kg

DRUGS (1)
  1. MYLOTARG [Suspect]
     Indication: ACUTE MYELOID LEUKAEMIA
     Dosage: 9.1 MG 1X PER 1 DAY, INTRAVENOUS
     Route: 042
     Dates: start: 20040311, end: 20040311

REACTIONS (9)
  - ALANINE AMINOTRANSFERASE INCREASED [None]
  - ASPARTATE AMINOTRANSFERASE INCREASED [None]
  - BLOOD ALKALINE PHOSPHATASE INCREASED [None]
  - BLOOD BILIRUBIN INCREASED [None]
  - DYSPNOEA [None]
  - PLEURAL EFFUSION [None]
  - RENAL FAILURE [None]
  - ULTRASOUND LIVER ABNORMAL [None]
  - WEIGHT INCREASED [None]
